FAERS Safety Report 19681565 (Version 1)
Quarter: 2021Q3

REPORT INFORMATION
  Report Type: Spontaneous
  Country: US (occurrence: US)
  Receive Date: 20210810
  Receipt Date: 20210810
  Transmission Date: 20211014
  Serious: Yes (Other)
  Sender: FDA-Public Use
  Company Number: US-ASTRAZENECA-2021A660335

PATIENT
  Age: 68 Year
  Sex: Female
  Weight: 55.4 kg

DRUGS (1)
  1. CALQUENCE [Suspect]
     Active Substance: ACALABRUTINIB
     Indication: CHRONIC LYMPHOCYTIC LEUKAEMIA
     Route: 048
     Dates: start: 20210414, end: 202104

REACTIONS (15)
  - Pancytopenia [Unknown]
  - Arthralgia [Unknown]
  - N-terminal prohormone brain natriuretic peptide increased [Unknown]
  - Dermatitis [Not Recovered/Not Resolved]
  - Cardiac failure [Unknown]
  - Dyspnoea exertional [Unknown]
  - Platelet count abnormal [Recovering/Resolving]
  - Haemoglobin abnormal [Recovering/Resolving]
  - Blood albumin abnormal [Recovering/Resolving]
  - Transaminases abnormal [Recovering/Resolving]
  - Transaminases increased [Unknown]
  - Decreased appetite [Unknown]
  - Fatigue [Unknown]
  - Abdominal distension [Unknown]
  - Blood sodium abnormal [Recovering/Resolving]
